FAERS Safety Report 8216666-4 (Version None)
Quarter: 2012Q1

REPORT INFORMATION
  Report Type: 
  Country: None (occurrence: None)
  Receive Date: 20120316
  Receipt Date: 20120306
  Transmission Date: 20120608
  Serious: Yes (Other)
  Sender: FDA-Public Use
  Company Number: US-ABBOTT-12P-163-0915885-00

PATIENT
  Sex: Female
  Weight: 58.05 kg

DRUGS (6)
  1. BIAXIN [Suspect]
     Indication: PRODUCT USED FOR UNKNOWN INDICATION
  2. PROTONIX [Suspect]
     Indication: PRODUCT USED FOR UNKNOWN INDICATION
  3. LIPITOR [Suspect]
     Indication: BLOOD CHOLESTEROL INCREASED
     Dosage: DAILY DOSE: 40MG
     Route: 048
  4. PLAVIX [Suspect]
     Indication: FACTOR V LEIDEN MUTATION
  5. COUMADIN [Suspect]
     Indication: FACTOR V LEIDEN MUTATION
  6. TRICOR [Suspect]
     Indication: FACTOR V LEIDEN MUTATION

REACTIONS (8)
  - ATRIAL FIBRILLATION [None]
  - TRANSIENT ISCHAEMIC ATTACK [None]
  - FIBROMYALGIA [None]
  - THROMBOSIS [None]
  - CARDIAC DISORDER [None]
  - ARTHRALGIA [None]
  - MALAISE [None]
  - FACTOR V LEIDEN MUTATION [None]
